FAERS Safety Report 18522786 (Version 2)
Quarter: 2021Q1

REPORT INFORMATION
  Report Type: Report from Study
  Country: SG (occurrence: SG)
  Receive Date: 20201119
  Receipt Date: 20210102
  Transmission Date: 20210419
  Serious: Yes (Other)
  Sender: FDA-Public Use
  Company Number: NVSC2020SG304200

PATIENT
  Age: 28 Year
  Sex: Male

DRUGS (1)
  1. COSENTYX [Suspect]
     Active Substance: SECUKINUMAB
     Indication: AXIAL SPONDYLOARTHRITIS
     Dosage: UNK
     Route: 058

REACTIONS (2)
  - Helicobacter gastritis [Recovered/Resolved]
  - Fungal infection [Recovered/Resolved]
